FAERS Safety Report 13091769 (Version 1)
Quarter: 2017Q1

REPORT INFORMATION
  Report Type: Spontaneous
  Country: US (occurrence: US)
  Receive Date: 20170106
  Receipt Date: 20170106
  Transmission Date: 20170428
  Serious: No
  Sender: FDA-Public Use
  Company Number: US-BAYER-2017-002805

PATIENT
  Sex: Female

DRUGS (1)
  1. MIRALAX [Suspect]
     Active Substance: POLYETHYLENE GLYCOL 3350
     Indication: MEDICAL PROCEDURE
     Dosage: 14 CAPFULS OF MIRALAX TO 64 OUNCES OF LIQUID
     Route: 065

REACTIONS (1)
  - Off label use [Unknown]
